FAERS Safety Report 4544984-X (Version None)
Quarter: 2005Q1

REPORT INFORMATION
  Report Type: 
  Country: None (occurrence: None)
  Receive Date: 20050104
  Receipt Date: 20041214
  Transmission Date: 20050727
  Serious: Yes (Other)
  Sender: FDA-Public Use
  Company Number: 211116

PATIENT
  Age: 69 Year
  Sex: Female
  Weight: 79.4 kg

DRUGS (3)
  1. ERLOTINIB(ERLOTINIB) TABLET [Suspect]
     Indication: NON-SMALL CELL LUNG CANCER
     Dosage: 150 MG, QD, ORAL
     Route: 048
     Dates: start: 20041124
  2. PROPINE EYE DROPS (DIPIVEFRIN HYDROCHLORIDE) [Concomitant]
  3. XALATAN EYE GTTS. (LATANOPROST) [Concomitant]

REACTIONS (8)
  - CONFUSIONAL STATE [None]
  - DISORIENTATION [None]
  - DRUG INTERACTION [None]
  - ERYTHEMA [None]
  - PROTHROMBIN TIME PROLONGED [None]
  - PRURITUS [None]
  - RASH [None]
  - SKIN DISCOLOURATION [None]
